FAERS Safety Report 13425970 (Version 3)
Quarter: 2017Q3

REPORT INFORMATION
  Report Type: Spontaneous
  Country: US (occurrence: US)
  Receive Date: 20170411
  Receipt Date: 20170705
  Transmission Date: 20171127
  Serious: No
  Sender: FDA-Public Use
  Company Number: US-JNJFOC-20170308167

PATIENT
  Sex: Female

DRUGS (3)
  1. DURAGESIC [Suspect]
     Active Substance: FENTANYL
     Indication: SPINAL CORD INJURY
     Route: 062
     Dates: start: 2015
  2. DURAGESIC [Suspect]
     Active Substance: FENTANYL
     Indication: SPINAL CORD INJURY
     Route: 062
     Dates: start: 2015, end: 2015
  3. DURAGESIC [Suspect]
     Active Substance: FENTANYL
     Indication: SPINAL CORD INJURY
     Route: 062
     Dates: end: 2015

REACTIONS (5)
  - Therapeutic response decreased [Unknown]
  - Pain [Unknown]
  - Drug dose omission [Unknown]
  - Palpitations [Unknown]
  - Visual impairment [Not Recovered/Not Resolved]
